FAERS Safety Report 24394293 (Version 1)
Quarter: 2024Q4

REPORT INFORMATION
  Report Type: Spontaneous
  Country: PL (occurrence: PL)
  Receive Date: 20241004
  Receipt Date: 20241004
  Transmission Date: 20250115
  Serious: Yes (Other)
  Sender: AUROBINDO
  Company Number: PL-AMGEN-POLSP2024140386

PATIENT
  Age: 57 Year
  Sex: Female

DRUGS (8)
  1. IRINOTECAN [Suspect]
     Active Substance: IRINOTECAN
     Indication: Colorectal cancer metastatic
     Dosage: 180 MILLIGRAM/SQ. METER (90-MINUTE INFUSION)
     Route: 042
     Dates: start: 202208
  2. LEUCOVORIN CALCIUM [Suspect]
     Active Substance: LEUCOVORIN CALCIUM
     Indication: Colorectal cancer metastatic
     Dosage: 200 MILLIGRAM/SQ. METER (IN A 2-HOUR INFUSION)
     Route: 042
     Dates: start: 202208
  3. FLUOROURACIL [Suspect]
     Active Substance: FLUOROURACIL
     Indication: Colorectal cancer metastatic
     Dosage: 600 MILLIGRAM/SQ. METER, ONCE A DAY(48-HOUR INFUSION)
     Route: 042
     Dates: start: 202208
  4. FLUOROURACIL [Suspect]
     Active Substance: FLUOROURACIL
     Dosage: 400 MILLIGRAM/SQ. METER (BOLUS)
     Route: 042
     Dates: start: 202208
  5. PANITUMUMAB [Suspect]
     Active Substance: PANITUMUMAB
     Indication: Colorectal cancer metastatic
     Dosage: 6 MILLIGRAM/KILOGRAM
     Route: 065
     Dates: start: 202208, end: 2022
  6. PANITUMUMAB [Suspect]
     Active Substance: PANITUMUMAB
     Dosage: 6 MILLIGRAM/KILOGRAM
     Route: 065
     Dates: start: 2022
  7. ATROPINE [Concomitant]
     Active Substance: ATROPINE
     Indication: Premedication
     Dosage: 0.25 MILLIGRAM
     Route: 058
     Dates: start: 202208
  8. ONDANSETRON [Concomitant]
     Active Substance: ONDANSETRON
     Indication: Premedication
     Dosage: 8 MILLIGRAM
     Route: 065
     Dates: start: 202208

REACTIONS (8)
  - Rash pustular [Recovering/Resolving]
  - Pruritus [Unknown]
  - Dry skin [Unknown]
  - Oral pain [Unknown]
  - Lip pain [Unknown]
  - Swelling of eyelid [Recovering/Resolving]
  - Rash erythematous [Recovering/Resolving]
  - Skin abrasion [Recovered/Resolved]

NARRATIVE: CASE EVENT DATE: 20220101
